FAERS Safety Report 20231227 (Version 2)
Quarter: 2021Q4

REPORT INFORMATION
  Report Type: Report from Study
  Country: US (occurrence: US)
  Receive Date: 20211227
  Receipt Date: 20211230
  Transmission Date: 20220303
  Serious: Yes (Other)
  Sender: FDA-Public Use
  Company Number: US-NOVARTISTESTPH-NVSC2021US292864

PATIENT
  Sex: Female

DRUGS (1)
  1. PIQRAY [Suspect]
     Active Substance: ALPELISIB
     Indication: Breast cancer metastatic
     Dosage: UNK
     Route: 065
     Dates: start: 202009, end: 202109

REACTIONS (4)
  - Metastases to liver [Unknown]
  - Metastases to spine [Unknown]
  - Hyperglycaemia [Unknown]
  - Alopecia [Unknown]

NARRATIVE: CASE EVENT DATE: 20210101
